FAERS Safety Report 16060071 (Version 1)
Quarter: 2019Q2

REPORT INFORMATION
  Report Type: Spontaneous
  Country: PT (occurrence: PT)
  Receive Date: 20190312
  Receipt Date: 20190312
  Transmission Date: 20190711
  Serious: Yes (Other)
  Sender: FDA-Public Use
  Company Number: None

PATIENT
  Age: 18 Year
  Sex: Male
  Weight: 55 kg

DRUGS (1)
  1. ISOTRETINOIE [Suspect]
     Active Substance: ISOTRETINOIN
     Indication: ACNE
     Dosage: ?          QUANTITY:60 CAPSULE(S);?
     Route: 048

REACTIONS (11)
  - Fatigue [None]
  - Depression [None]
  - Dry eye [None]
  - Nasal dryness [None]
  - Myalgia [None]
  - Lip dry [None]
  - Arthralgia [None]
  - Disturbance in attention [None]
  - Dry skin [None]
  - Asthenia [None]
  - Anhedonia [None]

NARRATIVE: CASE EVENT DATE: 20160913
